FAERS Safety Report 6522363-3 (Version None)
Quarter: 2009Q4

REPORT INFORMATION
  Report Type: 
  Country: None (occurrence: None)
  Receive Date: 20091229
  Receipt Date: 20091229
  Transmission Date: 20100525
  Serious: No
  Sender: FDA-Public Use
  Company Number: None

PATIENT
  Age: 40 Year
  Sex: Female
  Weight: 57 kg

DRUGS (6)
  1. INSULIN ASPART [Suspect]
     Indication: TYPE 1 DIABETES MELLITUS
     Dosage: 8 UNITS SQ
     Route: 058
     Dates: start: 20091006
  2. HEPARIN [Concomitant]
  3. LORAZEPAM [Concomitant]
  4. PHENYTOIN [Concomitant]
  5. NAHCO3 [Concomitant]
  6. VANCOMYCIN [Concomitant]

REACTIONS (2)
  - BLOOD GLUCOSE DECREASED [None]
  - BLOOD GLUCOSE INCREASED [None]
